FAERS Safety Report 25521354 (Version 7)
Quarter: 2025Q4

REPORT INFORMATION
  Report Type: Report from Study
  Country: CH (occurrence: CH)
  Receive Date: 20250705
  Receipt Date: 20251122
  Transmission Date: 20260117
  Serious: Yes (Other)
  Sender: TRAVERE THERAPEUTICS
  Company Number: CH-BEH-2025208947

PATIENT
  Age: 47 Year
  Sex: Male

DRUGS (10)
  1. FILSPARI [Suspect]
     Active Substance: SPARSENTAN
     Indication: IgA nephropathy
     Dosage: 200 MG
     Route: 065
     Dates: start: 20241030, end: 20241114
  2. FILSPARI [Suspect]
     Active Substance: SPARSENTAN
     Dosage: 400 MG
     Route: 065
     Dates: start: 20241115, end: 20250604
  3. CANDESARTAN [Concomitant]
     Active Substance: CANDESARTAN
     Indication: Hypertension
     Dosage: 32 MG
     Dates: end: 20241030
  4. DAPAGLIFLOZIN [Concomitant]
     Active Substance: DAPAGLIFLOZIN
     Dosage: 10 MG, QD
     Dates: end: 202506
  5. NEBIVOLOL [Concomitant]
     Active Substance: NEBIVOLOL
     Dosage: 5 MG, QD
  6. VITAMIN D3 [Concomitant]
     Active Substance: CHOLECALCIFEROL
     Dosage: 1000 IU
  7. OMEGA 3 [Concomitant]
     Active Substance: CAPSAICIN
  8. MAGNESIUM [Concomitant]
     Active Substance: MAGNESIUM
  9. VITAMIN C [Concomitant]
     Active Substance: ASCORBIC ACID
  10. SELENIUM [Concomitant]
     Active Substance: SELENIUM

REACTIONS (20)
  - Hypertension [Unknown]
  - Klebsiella urinary tract infection [Unknown]
  - Flank pain [Unknown]
  - Pollakiuria [Recovered/Resolved]
  - Nocturia [Recovered/Resolved]
  - Dysuria [Recovered/Resolved]
  - Jaundice [Recovering/Resolving]
  - Fatigue [Recovering/Resolving]
  - Drug-induced liver injury [Unknown]
  - Hepatic necrosis [Recovering/Resolving]
  - Transaminases increased [Recovered/Resolved]
  - Thrombocytopenia [Recovered/Resolved]
  - Gamma-glutamyltransferase increased [Recovering/Resolving]
  - Blood bilirubin increased [Unknown]
  - Haemolysis [Unknown]
  - Haemangioma of liver [Not Recovered/Not Resolved]
  - Leukocytosis [Unknown]
  - Pyrexia [Recovering/Resolving]
  - C-reactive protein increased [Recovered/Resolved]
  - Blood creatinine increased [Unknown]

NARRATIVE: CASE EVENT DATE: 20241101
